FAERS Safety Report 11748621 (Version 2)
Quarter: 2015Q4

REPORT INFORMATION
  Report Type: Spontaneous
  Country: JP (occurrence: JP)
  Receive Date: 20151117
  Receipt Date: 20151214
  Transmission Date: 20160304
  Serious: Yes (Other)
  Sender: FDA-Public Use
  Company Number: JP-ROCHE-1660203

PATIENT
  Age: 74 Year
  Sex: Female
  Weight: 48 kg

DRUGS (2)
  1. BONVIVA [Suspect]
     Active Substance: IBANDRONATE SODIUM
     Indication: OSTEOPOROSIS
     Dosage: DATE OF MOST RECENT DOSE: 25/SEP/2015.
     Route: 042
     Dates: start: 20150824
  2. ARTZ [Concomitant]
     Indication: OSTEOARTHRITIS
     Route: 014
     Dates: start: 20111219

REACTIONS (2)
  - Alopecia [Recovered/Resolved]
  - Flushing [Recovered/Resolved]

NARRATIVE: CASE EVENT DATE: 20151009
